FAERS Safety Report 21353921 (Version 2)
Quarter: 2022Q4

REPORT INFORMATION
  Report Type: Report from Study
  Country: US (occurrence: US)
  Receive Date: 20220920
  Receipt Date: 20221018
  Transmission Date: 20230113
  Serious: No
  Sender: FDA-Public Use
  Company Number: US-ABBVIE-4127772

PATIENT
  Sex: Male

DRUGS (2)
  1. VENCLEXTA [Suspect]
     Active Substance: VENETOCLAX
     Indication: Myeloproliferative neoplasm
     Dosage: DAILY FOR 7 DAYS ON AND THEN 21 DAYS OFF?TAKE 1 TABLET BY MOUTH DAILY WITH FOOD AND WATER DAYS 1 ...
     Route: 048
  2. DECITABINE [Concomitant]
     Active Substance: DECITABINE
     Indication: Myelodysplastic syndrome

REACTIONS (2)
  - Off label use [Unknown]
  - Emotional distress [Unknown]
